FAERS Safety Report 20840916 (Version 2)
Quarter: 2022Q2

REPORT INFORMATION
  Report Type: Spontaneous
  Country: JP (occurrence: JP)
  Receive Date: 20220517
  Receipt Date: 20220527
  Transmission Date: 20220721
  Serious: No
  Sender: FDA-Public Use
  Company Number: JP-ONO-2022JP008314

PATIENT
  Age: 7 Decade
  Sex: Female

DRUGS (5)
  1. BRAFTOVI [Suspect]
     Active Substance: ENCORAFENIB
     Indication: Colon cancer
     Dosage: UNK
     Route: 048
     Dates: start: 20211122, end: 20220306
  2. BRAFTOVI [Suspect]
     Active Substance: ENCORAFENIB
     Dosage: UNK [REDUCED DOSES BY 1 LEVEL (80% REDUCTION)]
     Route: 048
     Dates: start: 20220314
  3. MEKTOVI [Suspect]
     Active Substance: BINIMETINIB
     Indication: Colon cancer
     Dosage: UNK
     Route: 048
     Dates: start: 20211122, end: 20220306
  4. MEKTOVI [Suspect]
     Active Substance: BINIMETINIB
     Dosage: UNK [REDUCED DOSES BY 1 LEVEL (80% REDUCTION)]
     Route: 048
     Dates: start: 20220314
  5. CETUXIMAB [Concomitant]
     Active Substance: CETUXIMAB
     Indication: Colon cancer
     Dosage: UNK
     Route: 065
     Dates: start: 20211122

REACTIONS (2)
  - Oedema [Recovering/Resolving]
  - Anaemia [Recovered/Resolved]

NARRATIVE: CASE EVENT DATE: 20220221
